FAERS Safety Report 23779142 (Version 1)
Quarter: 2024Q2

REPORT INFORMATION
  Report Type: Spontaneous
  Country: US (occurrence: US)
  Receive Date: 20240424
  Receipt Date: 20240424
  Transmission Date: 20240716
  Serious: Yes (Other)
  Sender: FDA-Public Use
  Company Number: US-FreseniusKabi-FK202406651

PATIENT
  Age: 36 Year
  Sex: Male

DRUGS (1)
  1. PROTAMINE SULFATE [Suspect]
     Active Substance: PROTAMINE SULFATE
     Indication: Procoagulant therapy

REACTIONS (2)
  - Pulmonary hypertension [Recovering/Resolving]
  - Right ventricular failure [Recovering/Resolving]
